FAERS Safety Report 4394563-2 (Version None)
Quarter: 2004Q3

REPORT INFORMATION
  Report Type: 
  Country: None (occurrence: None)
  Receive Date: 20040712
  Receipt Date: 20031124
  Transmission Date: 20050211
  Serious: Yes (Hospitalization)
  Sender: FDA-Public Use
  Company Number: BR-ROCHE-352428

PATIENT
  Age: 49 Year
  Sex: Female
  Weight: 37.5 kg

DRUGS (7)
  1. MYCOPHENOLATE MOFETIL [Suspect]
     Route: 048
     Dates: start: 20030801
  2. DACLIZUMAB [Suspect]
     Route: 042
     Dates: start: 20030801, end: 20030801
  3. DACLIZUMAB [Suspect]
     Route: 042
     Dates: end: 20030926
  4. SIROLIMUS [Suspect]
     Route: 048
     Dates: start: 20030801
  5. CORTICOSTEROIDS [Suspect]
     Route: 065
  6. ADALAT [Concomitant]
     Route: 048
     Dates: start: 20030804, end: 20031114
  7. OMEPRAZOLE [Concomitant]
     Route: 048
     Dates: start: 20031113, end: 20031211

REACTIONS (3)
  - DEHYDRATION [None]
  - GASTROINTESTINAL INFECTION [None]
  - HAEMORRHOIDS [None]
